FAERS Safety Report 8876171 (Version 1)
Quarter: 2012Q4

REPORT INFORMATION
  Report Type: Report from Study
  Country: CI (occurrence: CI)
  Receive Date: 20121023
  Receipt Date: 20121023
  Transmission Date: 20130627
  Serious: Yes (Other)
  Sender: FDA-Public Use
  Company Number: CI-GILEAD-2012-0062551

PATIENT
  Age: 37 Year
  Sex: Female

DRUGS (5)
  1. EMTRICITABINE/TENOFOVIR DISOPROXIL FUMARATE [Suspect]
     Indication: HIV INFECTION
     Dosage: 1 DF, QD
     Route: 048
     Dates: start: 20090514
  2. ALUVIA [Concomitant]
     Indication: HIV INFECTION
     Dosage: 1 DF, QD
     Route: 048
     Dates: start: 20090514
  3. RITONAVIR [Concomitant]
     Indication: HIV INFECTION
     Dosage: UNK
     Route: 048
     Dates: start: 20090514
  4. QUININE [Concomitant]
     Indication: MALARIA
     Dosage: UNK, BID
     Route: 048
     Dates: start: 20101119, end: 20101121
  5. QUININE [Concomitant]
     Dosage: UNK
     Route: 048
     Dates: start: 20111119, end: 20111121

REACTIONS (1)
  - Stillbirth [Unknown]
